FAERS Safety Report 4668007-7 (Version None)
Quarter: 2005Q2

REPORT INFORMATION
  Report Type: 
  Country: None (occurrence: None)
  Receive Date: 20050520
  Receipt Date: 20050510
  Transmission Date: 20051028
  Serious: Yes (Hospitalization)
  Sender: FDA-Public Use
  Company Number: FR-ABBOTT-05P-056-0300223-00

PATIENT
  Age: 84 Year
  Sex: Male

DRUGS (8)
  1. DEPAKENE [Suspect]
     Indication: DRUG USE FOR UNKNOWN INDICATION
     Route: 048
     Dates: start: 20050311
  2. DEPAKINE INJECTION [Suspect]
     Indication: DRUG USE FOR UNKNOWN INDICATION
     Dosage: 100 MG/ ML
     Route: 042
     Dates: start: 20050315, end: 20050320
  3. FUROSEMIDE [Suspect]
     Indication: DRUG USE FOR UNKNOWN INDICATION
     Route: 048
     Dates: start: 20050313, end: 20050315
  4. FUROSEMIDE [Suspect]
     Dosage: 10 MG/ ML
     Route: 042
     Dates: start: 20050314, end: 20050314
  5. FUROSEMIDE [Suspect]
     Dosage: 10 MG/ ML
     Route: 042
     Dates: start: 20050315, end: 20050318
  6. SODIUM ENOXAPARINE [Suspect]
     Indication: DRUG USE FOR UNKNOWN INDICATION
     Route: 058
     Dates: start: 20050314, end: 20050323
  7. CIPROFLOXACIN [Suspect]
     Indication: DRUG USE FOR UNKNOWN INDICATION
     Route: 042
     Dates: start: 20050314, end: 20050321
  8. TAZOBACTAM+PIPERACILLINE [Suspect]
     Indication: PNEUMONIA ASPIRATION
     Route: 042
     Dates: start: 20050314, end: 20050329

REACTIONS (3)
  - HYPOKALAEMIA [None]
  - PNEUMONIA ASPIRATION [None]
  - URINE POTASSIUM DECREASED [None]
